FAERS Safety Report 9292108 (Version 1)
Quarter: 2013Q2

REPORT INFORMATION
  Report Type: Report from Study
  Country: US (occurrence: US)
  Receive Date: 20130516
  Receipt Date: 20130516
  Transmission Date: 20140414
  Serious: Yes (Other)
  Sender: FDA-Public Use
  Company Number: US-ROCHE-1222186

PATIENT
  Sex: Female

DRUGS (3)
  1. ACTEMRA [Suspect]
     Indication: RHEUMATOID ARTHRITIS
     Dosage: DATE OF MOST RECENT INFUSION PRIOR TO AE: 25/MAR/2013
     Route: 042
  2. PERCOCET [Concomitant]
     Indication: RHEUMATOID ARTHRITIS
     Route: 065
  3. MORPHINE [Concomitant]
     Indication: RHEUMATOID ARTHRITIS
     Route: 065

REACTIONS (1)
  - Stevens-Johnson syndrome [Not Recovered/Not Resolved]
